FAERS Safety Report 17058862 (Version 2)
Quarter: 2020Q1

REPORT INFORMATION
  Report Type: Spontaneous
  Country: IT (occurrence: IT)
  Receive Date: 20191121
  Receipt Date: 20200102
  Transmission Date: 20200409
  Serious: Yes (Death, Hospitalization, Other)
  Sender: FDA-Public Use
  Company Number: IT-ASTRAZENECA-2019SF61206

PATIENT
  Age: 73 Year
  Sex: Male
  Weight: 70 kg

DRUGS (2)
  1. DURVALUMAB. [Suspect]
     Active Substance: DURVALUMAB
     Indication: NON-SMALL CELL LUNG CANCER STAGE III
     Route: 030
     Dates: start: 20190613, end: 20191002
  2. DURVALUMAB. [Suspect]
     Active Substance: DURVALUMAB
     Indication: LUNG ADENOCARCINOMA STAGE III
     Route: 030
     Dates: start: 20190613, end: 20191002

REACTIONS (4)
  - Toxicity to various agents [Fatal]
  - Pneumonitis [Fatal]
  - Multiple organ dysfunction syndrome [Fatal]
  - Pneumonia escherichia [Fatal]
